FAERS Safety Report 8122894-9 (Version None)
Quarter: 2012Q1

REPORT INFORMATION
  Report Type: 
  Country: None (occurrence: None)
  Receive Date: 20120208
  Receipt Date: 20120202
  Transmission Date: 20120608
  Serious: Yes (Death)
  Sender: FDA-Public Use
  Company Number: US-PFIZER INC-2012034075

PATIENT

DRUGS (5)
  1. PREDNISONE TAB [Suspect]
     Dosage: UNK
     Route: 064
  2. RITUXIMAB [Suspect]
     Dosage: UNK
     Route: 064
  3. ADRIAMYCIN PFS [Suspect]
     Dosage: UNK
     Route: 064
  4. VINCRISTINE [Suspect]
     Dosage: UNK
     Route: 064
  5. CYTOXAN [Suspect]
     Dosage: UNK
     Route: 064

REACTIONS (1)
  - MATERNAL EXPOSURE TIMING UNSPECIFIED [None]
